FAERS Safety Report 21939563 (Version 1)
Quarter: 2023Q1

REPORT INFORMATION
  Report Type: Spontaneous
  Country: US (occurrence: US)
  Receive Date: 20230201
  Receipt Date: 20230201
  Transmission Date: 20230418
  Serious: No
  Sender: FDA-Public Use
  Company Number: US-EXELIXIS-CABO-22047879

PATIENT
  Age: 61 Year
  Sex: Male

DRUGS (4)
  1. CABOMETYX [Suspect]
     Active Substance: CABOZANTINIB S-MALATE
     Indication: Lung adenocarcinoma
     Dosage: 60 MG, QD
     Route: 048
  2. CABOMETYX [Suspect]
     Active Substance: CABOZANTINIB S-MALATE
     Indication: Metastases to liver
  3. OSIMERTINIB [Suspect]
     Active Substance: OSIMERTINIB
     Indication: Lung adenocarcinoma
     Dosage: 80 MG, QD
     Route: 048
  4. OSIMERTINIB [Suspect]
     Active Substance: OSIMERTINIB
     Indication: Metastases to liver

REACTIONS (3)
  - Cytopenia [Unknown]
  - Gastrointestinal toxicity [Unknown]
  - Fatigue [Unknown]
